FAERS Safety Report 5059065-9 (Version None)
Quarter: 2006Q3

REPORT INFORMATION
  Report Type: 
  Country: None (occurrence: None)
  Receive Date: 20060719
  Receipt Date: 20060710
  Transmission Date: 20061208
  Serious: Yes (Hospitalization)
  Sender: FDA-Public Use
  Company Number: 14368

PATIENT
  Age: 63 Year
  Sex: Male

DRUGS (5)
  1. FLUOROURACIL [Suspect]
     Indication: COLON CANCER STAGE III
  2. LEUCOVORIN CALCIUM [Suspect]
     Indication: COLON CANCER STAGE III
  3. ELOXATIN [Suspect]
     Indication: COLON CANCER STAGE III
     Dosage: 170 MG FORTNIGHTLY IV
     Route: 042
  4. CALCIUM GLUCONATE [Concomitant]
  5. MAGNESIUM [Concomitant]

REACTIONS (4)
  - BONE MARROW FAILURE [None]
  - MUSCLE CONTRACTIONS INVOLUNTARY [None]
  - MYOCLONUS [None]
  - TREMOR [None]
